FAERS Safety Report 12394488 (Version 5)
Quarter: 2016Q4

REPORT INFORMATION
  Report Type: Report from Study
  Country: US (occurrence: US)
  Receive Date: 20160523
  Receipt Date: 20161207
  Transmission Date: 20170207
  Serious: Yes (Hospitalization)
  Sender: FDA-Public Use
  Company Number: US-PFIZER INC-2016258303

PATIENT
  Age: 67 Year
  Sex: Female
  Weight: 82 kg

DRUGS (6)
  1. DOXORUBICIN HCL [Suspect]
     Active Substance: DOXORUBICIN HYDROCHLORIDE
     Dosage: 60 MG/M2, CYCLIC, DAY 1
     Route: 042
     Dates: start: 20160201
  2. DEXRAZOXANE. [Concomitant]
     Active Substance: DEXRAZOXANE
  3. DOXORUBICIN HCL [Suspect]
     Active Substance: DOXORUBICIN HYDROCHLORIDE
     Indication: LIPOSARCOMA
     Dosage: 75 MG/M2, CYCLIC, ON DAY 1 ALONE
     Route: 042
     Dates: start: 20160111
  4. OLARATUMAB [Suspect]
     Active Substance: OLARATUMAB
     Dosage: (LIQUID) 10 MG/KG, CYCLIC, DAY ONE AND DAY 8 OF A 21 DAY CYCLE
     Route: 042
     Dates: start: 20160201
  5. DOXORUBICIN HCL [Suspect]
     Active Substance: DOXORUBICIN HYDROCHLORIDE
     Dosage: 45 MG/M2, CYCLIC, DAY 1
     Route: 042
     Dates: start: 20160511
  6. OLARATUMAB [Suspect]
     Active Substance: OLARATUMAB
     Indication: LIPOSARCOMA
     Dosage: (LIQUID) 15 MG/KG, CYCLIC, ON DAY TEN ALONE
     Route: 042
     Dates: start: 20160121

REACTIONS (2)
  - Enterocutaneous fistula [Recovered/Resolved]
  - Fistula discharge [Recovered/Resolved]

NARRATIVE: CASE EVENT DATE: 20160501
